FAERS Safety Report 24042453 (Version 4)
Quarter: 2025Q2

REPORT INFORMATION
  Report Type: Spontaneous
  Country: US (occurrence: US)
  Receive Date: 20240702
  Receipt Date: 20250519
  Transmission Date: 20250716
  Serious: No
  Sender: PFIZER
  Company Number: US-PFIZER INC-202400199068

PATIENT
  Age: 66 Year
  Sex: Female

DRUGS (18)
  1. LITFULO [Suspect]
     Active Substance: RITLECITINIB TOSYLATE
     Indication: Alopecia areata
     Dosage: 50 MG, 1X/DAY
  2. BETAMETHASONE DIPROPIONATE [Concomitant]
     Active Substance: BETAMETHASONE DIPROPIONATE
  3. CICLOPIROX [Concomitant]
     Active Substance: CICLOPIROX
  4. FLUOCINOLONE [Concomitant]
     Active Substance: FLUOCINOLONE
  5. LOPROX [Concomitant]
     Active Substance: CICLOPIROX\CICLOPIROX OLAMINE
  6. MUPIROCIN [Concomitant]
     Active Substance: MUPIROCIN
  7. OPZELURA [Concomitant]
     Active Substance: RUXOLITINIB PHOSPHATE
  8. TACROLIMUS [Concomitant]
     Active Substance: TACROLIMUS
  9. TRIAMCINOLONE [Concomitant]
     Active Substance: TRIAMCINOLONE
  10. WIXELA INHUB [Concomitant]
     Active Substance: FLUTICASONE PROPIONATE\SALMETEROL XINAFOATE
  11. HYDROXYZINE [Concomitant]
     Active Substance: HYDROXYZINE HYDROCHLORIDE
  12. LEVOTHYROXINE [Concomitant]
     Active Substance: LEVOTHYROXINE
  13. MINOXIDIL [Concomitant]
     Active Substance: MINOXIDIL
  14. OLUMIANT [Concomitant]
     Active Substance: BARICITINIB
  15. PREDNISONE [Concomitant]
     Active Substance: PREDNISONE
  16. VALACYCLOVIR [Concomitant]
     Active Substance: VALACYCLOVIR HYDROCHLORIDE
  17. CLOBETASOL [Concomitant]
     Active Substance: CLOBETASOL
  18. FLUOCINOLONE ACETONIDE [Concomitant]
     Active Substance: FLUOCINOLONE ACETONIDE

REACTIONS (1)
  - Illness [Unknown]
